FAERS Safety Report 20433163 (Version 1)
Quarter: 2022Q1

REPORT INFORMATION
  Report Type: Spontaneous
  Country: US (occurrence: US)
  Receive Date: 20220205
  Receipt Date: 20220205
  Transmission Date: 20220423
  Serious: No
  Sender: FDA-Public Use
  Company Number: US-SA-SAC20220131000656

PATIENT
  Sex: Female
  Weight: 170 kg

DRUGS (7)
  1. KEVZARA [Suspect]
     Active Substance: SARILUMAB
     Indication: Rheumatoid arthritis
     Route: 058
     Dates: start: 20211006
  2. XELJANZ [Concomitant]
     Active Substance: TOFACITINIB CITRATE
  3. LORAZEPAM [Concomitant]
     Active Substance: LORAZEPAM
  4. ADVIL [Concomitant]
     Active Substance: IBUPROFEN
  5. ESCITALOPRAM OXALATE [Concomitant]
     Active Substance: ESCITALOPRAM OXALATE
  6. LEFLUNOMIDE [Concomitant]
     Active Substance: LEFLUNOMIDE
  7. NEXIUM [Concomitant]
     Active Substance: ESOMEPRAZOLE MAGNESIUM

REACTIONS (1)
  - Upper respiratory tract infection [Recovered/Resolved]
